FAERS Safety Report 5511150-0 (Version None)
Quarter: 2007Q4

REPORT INFORMATION
  Report Type: 
  Country: None (occurrence: None)
  Receive Date: 20071109
  Receipt Date: 20071102
  Transmission Date: 20080405
  Serious: Yes (Other)
  Sender: FDA-Public Use
  Company Number: PHFR2007GB02995

PATIENT
  Age: 26 Year
  Sex: Female
  Weight: 53 kg

DRUGS (4)
  1. ESTRADERM [Suspect]
     Indication: OVARIAN FAILURE
     Dosage: 100MCG/DAY
     Route: 062
     Dates: start: 20061220
  2. BONIVA [Concomitant]
     Indication: OSTEOPOROSIS
     Dosage: 150MG/DAY
     Route: 048
     Dates: start: 20061115
  3. ACRIVASTINE [Concomitant]
     Indication: ECZEMA
     Dosage: 24MG/DAY
     Route: 048
     Dates: start: 20061201
  4. CITALOPRAM [Concomitant]
     Indication: DEPRESSION
     Dosage: 10MG/DAY
     Route: 048
     Dates: start: 20061201

REACTIONS (5)
  - APPLICATION SITE REACTION [None]
  - DRUG WITHDRAWAL SYNDROME [None]
  - NAUSEA [None]
  - NIGHT SWEATS [None]
  - PAIN [None]
